FAERS Safety Report 7604938-3 (Version None)
Quarter: 2011Q3

REPORT INFORMATION
  Report Type: 
  Country: None (occurrence: None)
  Receive Date: 20110713
  Receipt Date: 20110705
  Transmission Date: 20111222
  Serious: Yes (Hospitalization)
  Sender: FDA-Public Use
  Company Number: US-BIOGENIDEC-2011BI018864

PATIENT
  Age: 64 Year
  Sex: Female

DRUGS (3)
  1. TYSABRI [Suspect]
     Route: 042
     Dates: start: 20050124, end: 20050222
  2. COPAXONE [Concomitant]
     Indication: MULTIPLE SCLEROSIS
     Dates: end: 20101101
  3. TYSABRI [Suspect]
     Indication: MULTIPLE SCLEROSIS
     Route: 042
     Dates: start: 20101217, end: 20110506

REACTIONS (4)
  - MIGRAINE [None]
  - PNEUMONIA STAPHYLOCOCCAL [None]
  - CEREBRAL ISCHAEMIA [None]
  - WHITE BLOOD CELL COUNT DECREASED [None]
